FAERS Safety Report 6181008-5 (Version None)
Quarter: 2009Q2

REPORT INFORMATION
  Report Type: 
  Country: None (occurrence: None)
  Receive Date: 20090501
  Receipt Date: 20090417
  Transmission Date: 20091009
  Serious: Yes (Death)
  Sender: FDA-Public Use
  Company Number: DSJ-2009-05149

PATIENT
  Age: 52 Year

DRUGS (1)
  1. OLMETEC PLUS 20/12.5 (HYDROCHLOROTHIAZIDE, OLMESARTAN [Suspect]
     Indication: HYPERTENSION
     Dosage: 20/12.5 MG (1 IN 1 D) PER ORAL
     Route: 048
     Dates: start: 20090417, end: 20090417

REACTIONS (3)
  - HEADACHE [None]
  - MYOCARDIAL INFARCTION [None]
  - PULMONARY THROMBOSIS [None]
